FAERS Safety Report 9615611 (Version 1)
Quarter: 2013Q4

REPORT INFORMATION
  Report Type: Spontaneous
  Country: US (occurrence: None)
  Receive Date: 20131010
  Receipt Date: 20131010
  Transmission Date: 20140711
  Serious: Yes (Life-Threatening, Hospitalization, Disabling, Other)
  Sender: FDA-Public Use
  Company Number: None

PATIENT
  Age: 43 Year
  Sex: Male
  Weight: 131.54 kg

DRUGS (1)
  1. ANDROGEL [Suspect]
     Dosage: PACKET
     Route: 061
     Dates: start: 20000801, end: 20110901

REACTIONS (6)
  - Accidental exposure to product by child [None]
  - Loss of consciousness [None]
  - Aggression [None]
  - Mood altered [None]
  - Anger [None]
  - Memory impairment [None]
